FAERS Safety Report 4788610-3 (Version None)
Quarter: 2005Q4

REPORT INFORMATION
  Report Type: 
  Country: None (occurrence: None)
  Receive Date: 20051005
  Receipt Date: 20050513
  Transmission Date: 20060501
  Serious: Yes (Other)
  Sender: FDA-Public Use
  Company Number: US-GLAXOSMITHKLINE-A0558524A

PATIENT
  Age: 10 Year
  Sex: Male

DRUGS (2)
  1. FLONASE [Suspect]
     Indication: RHINITIS
     Route: 045
  2. NO CONCURRENT MEDICATION [Concomitant]

REACTIONS (2)
  - ANXIETY [None]
  - SYNCOPE [None]
